FAERS Safety Report 8927358 (Version 1)
Quarter: 2012Q4

REPORT INFORMATION
  Report Type: 
  Country: US (occurrence: US)
  Receive Date: 20121127
  Receipt Date: 20121127
  Transmission Date: 20130627
  Serious: Yes (Other)
  Sender: FDA-Public Use
  Company Number: US-US-EMD SERONO, INC.-7142033

PATIENT
  Sex: Female

DRUGS (4)
  1. REBIF [Suspect]
     Indication: MULTIPLE SCLEROSIS
     Route: 058
     Dates: start: 20120320
  2. MORPHINE [Concomitant]
     Indication: PRODUCT USED FOR UNKNOWN INDICATION
  3. CARBAMAZEPINE [Concomitant]
     Indication: CONVULSION
     Dates: end: 2012
  4. CARBAMAZEPINE [Concomitant]

REACTIONS (5)
  - Meniscus injury [Recovering/Resolving]
  - Arthritis [Unknown]
  - Synovial cyst [Not Recovered/Not Resolved]
  - Arthropathy [Unknown]
  - Pain [Not Recovered/Not Resolved]
